FAERS Safety Report 16857430 (Version 1)
Quarter: 2019Q3

REPORT INFORMATION
  Report Type: Spontaneous
  Country: CN (occurrence: CN)
  Receive Date: 20190926
  Receipt Date: 20190926
  Transmission Date: 20191005
  Serious: Yes (Other)
  Sender: FDA-Public Use
  Company Number: CN-ELEFSEE PHARMACEUTICALS INTERNATIONAL-CN-2019WTD000040

PATIENT
  Weight: 2.79 kg

DRUGS (3)
  1. BUPIVACAINE. [Suspect]
     Active Substance: BUPIVACAINE
     Indication: PRODUCT USED FOR UNKNOWN INDICATION
     Dosage: UNK
     Route: 015
  2. FENTANYL. [Suspect]
     Active Substance: FENTANYL
     Indication: PRODUCT USED FOR UNKNOWN INDICATION
     Dosage: UNK
     Route: 015
  3. OXYTOCIN. [Suspect]
     Active Substance: OXYTOCIN
     Indication: PRODUCT USED FOR UNKNOWN INDICATION
     Dosage: UNK
     Route: 015

REACTIONS (4)
  - Foetal exposure during delivery [Recovered/Resolved]
  - Foetal distress syndrome [Recovered/Resolved]
  - Meconium stain [Recovered/Resolved]
  - Bradycardia foetal [Recovered/Resolved]
